FAERS Safety Report 22810879 (Version 6)
Quarter: 2024Q4

REPORT INFORMATION
  Report Type: Spontaneous
  Country: CA (occurrence: CA)
  Receive Date: 20230810
  Receipt Date: 20241004
  Transmission Date: 20250115
  Serious: Yes (Other)
  Sender: PFIZER
  Company Number: CA-PFIZER INC-202300271682

PATIENT
  Age: 61 Year
  Sex: Female

DRUGS (6)
  1. SOMAVERT [Suspect]
     Active Substance: PEGVISOMANT
     Indication: Acromegaly
     Dosage: 15 MG, 1X/DAY
     Route: 058
     Dates: start: 20150805, end: 2016
  2. SOMAVERT [Suspect]
     Active Substance: PEGVISOMANT
     Dosage: 20 MG, 1X/DAY (DISCONTINUED)
     Route: 058
     Dates: start: 2016
  3. SOMAVERT [Suspect]
     Active Substance: PEGVISOMANT
     Dosage: 25 MG, 1X/DAY
     Route: 058
  4. ADVIL [Concomitant]
     Active Substance: IBUPROFEN
     Dosage: 1 DF, 200 MG-400 MG PRN
  5. TYLENOL ARTHRITIS PAIN [Concomitant]
     Active Substance: ACETAMINOPHEN
     Dosage: 3 DF, DAILY,2 TABLETS IN THE MORNING AND 1 IN THE AFTERNOON
  6. VAGIFEM [Concomitant]
     Active Substance: ESTRADIOL
     Dosage: 1 DF, 2X/WEEK
     Route: 065

REACTIONS (4)
  - Thyroid mass [Not Recovered/Not Resolved]
  - Glaucoma [Unknown]
  - Mammogram abnormal [Unknown]
  - Blood cholesterol increased [Unknown]

NARRATIVE: CASE EVENT DATE: 20230101
